FAERS Safety Report 14087525 (Version 5)
Quarter: 2019Q1

REPORT INFORMATION
  Report Type: Spontaneous
  Country: US (occurrence: US)
  Receive Date: 20171013
  Receipt Date: 20190306
  Transmission Date: 20190417
  Serious: Yes (Death, Hospitalization)
  Sender: FDA-Public Use
  Company Number: US-VIFOR (INTERNATIONAL) INC.-VIT-2017-10199

PATIENT
  Age: 65 Year
  Sex: Male
  Weight: 86.26 kg

DRUGS (8)
  1. ATORVASTATIN CALCIUM. [Concomitant]
     Active Substance: ATORVASTATIN CALCIUM
  2. EMLA [Concomitant]
     Active Substance: LIDOCAINE\PRILOCAINE
  3. RENVELA [Concomitant]
     Active Substance: SEVELAMER CARBONATE
  4. LORATADINE. [Concomitant]
     Active Substance: LORATADINE
  5. AMLODIPINE BESILATE [Concomitant]
     Active Substance: AMLODIPINE BESYLATE
  6. VELTASSA [Suspect]
     Active Substance: PATIROMER
     Indication: END STAGE RENAL DISEASE
  7. VELTASSA [Suspect]
     Active Substance: PATIROMER
     Indication: HYPERKALAEMIA
     Route: 048
     Dates: start: 20170608
  8. HYDRALAZINE HCL [Concomitant]
     Active Substance: HYDRALAZINE HYDROCHLORIDE

REACTIONS (2)
  - Blister infected [Recovering/Resolving]
  - Death [Fatal]

NARRATIVE: CASE EVENT DATE: 20170924
